FAERS Safety Report 10905193 (Version 1)
Quarter: 2015Q1

REPORT INFORMATION
  Report Type: Spontaneous
  Country: US (occurrence: None)
  Receive Date: 20150309
  Receipt Date: 20150309
  Transmission Date: 20150721
  Serious: Yes (Other)
  Sender: FDA-Public Use
  Company Number: None

PATIENT
  Age: 59 Year
  Sex: Male
  Weight: 81.65 kg

DRUGS (3)
  1. PREBIOTIC CAPSULE [Concomitant]
  2. NEXIUM [Suspect]
     Active Substance: ESOMEPRAZOLE MAGNESIUM
     Indication: GASTROOESOPHAGEAL REFLUX DISEASE
     Dosage: 2 PILLS TWICE DAILY TAKEN BY MOUTH
     Route: 048
  3. FIBER CAPSULES [Concomitant]

REACTIONS (1)
  - Nephropathy [None]

NARRATIVE: CASE EVENT DATE: 20150108
